FAERS Safety Report 8050928-9 (Version None)
Quarter: 2012Q1

REPORT INFORMATION
  Report Type: 
  Country: None (occurrence: None)
  Receive Date: 20120117
  Receipt Date: 20120110
  Transmission Date: 20120608
  Serious: Yes (Other)
  Sender: FDA-Public Use
  Company Number: PHFR2011GB006834

PATIENT
  Sex: Male

DRUGS (6)
  1. CLOZARIL [Suspect]
     Dosage: 300 MG
     Route: 048
     Dates: start: 20111111
  2. SENNA [Concomitant]
     Route: 048
  3. VALPROATE SODIUM [Concomitant]
     Indication: TEMPORAL LOBE EPILEPSY
     Dosage: 2.2 G, UNK
     Route: 048
  4. CLOZARIL [Suspect]
     Indication: SCHIZOPHRENIA
     Route: 048
     Dates: start: 20111027
  5. MULTI-VITAMINS [Concomitant]
  6. HYOSCINE [Concomitant]
     Dosage: 300 MG, UNK
     Route: 048

REACTIONS (5)
  - PYREXIA [None]
  - BACTERIAL INFECTION [None]
  - VIRAL INFECTION [None]
  - INFLUENZA LIKE ILLNESS [None]
  - NASOPHARYNGITIS [None]
